FAERS Safety Report 10276162 (Version 2)
Quarter: 2014Q3

REPORT INFORMATION
  Report Type: Spontaneous
  Country: US (occurrence: None)
  Receive Date: 20140701
  Receipt Date: 20140715
  Transmission Date: 20150326
  Serious: No
  Sender: FDA-Public Use
  Company Number: 2014-US-007594

PATIENT
  Age: 53 Year
  Sex: Male
  Weight: 103.4 kg

DRUGS (10)
  1. NEURONTIN (GABAPENTIN) CAPSULE [Concomitant]
  2. SUFENTANIL CITRATE. [Suspect]
     Active Substance: SUFENTANIL CITRATE
     Indication: PAIN
     Route: 037
     Dates: end: 20140612
  3. BUPIVACAINE HYDROCHLORIDE. [Suspect]
     Active Substance: BUPIVACAINE HYDROCHLORIDE
     Indication: PAIN
     Route: 037
     Dates: end: 20140612
  4. MSIR (MORPHINE SULFATE)TABLET [Concomitant]
  5. PRIALT [Suspect]
     Active Substance: ZICONOTIDE ACETATE
     Indication: PAIN
     Route: 037
     Dates: end: 20140612
  6. NORCO (HYDROCODONE BITARTRATE, PARACETAMOL) TABLET [Concomitant]
  7. PRIALT [Suspect]
     Active Substance: ZICONOTIDE ACETATE
     Indication: POST LAMINECTOMY SYNDROME
     Route: 037
     Dates: end: 20140612
  8. FLEXERIL (CYCLOBENZAPRINE HYDROCHLORIDE) TABLET [Concomitant]
  9. BUPIVACAINE HYDROCHLORIDE. [Suspect]
     Active Substance: BUPIVACAINE HYDROCHLORIDE
     Indication: POST LAMINECTOMY SYNDROME
     Route: 037
     Dates: end: 20140612
  10. SUFENTANIL CITRATE. [Suspect]
     Active Substance: SUFENTANIL CITRATE
     Indication: POST LAMINECTOMY SYNDROME
     Route: 037
     Dates: end: 20140612

REACTIONS (11)
  - Neck pain [None]
  - Urinary tract disorder [None]
  - Device issue [None]
  - Malaise [None]
  - Back pain [None]
  - Paraesthesia [None]
  - Poor quality sleep [None]
  - Pain [None]
  - Dehydration [None]
  - Activities of daily living impaired [None]
  - Gait disturbance [None]

NARRATIVE: CASE EVENT DATE: 20140530
